FAERS Safety Report 20620517 (Version 2)
Quarter: 2022Q2

REPORT INFORMATION
  Report Type: Spontaneous
  Country: US (occurrence: US)
  Receive Date: 20220322
  Receipt Date: 20220512
  Transmission Date: 20220720
  Serious: Yes (Hospitalization, Other)
  Sender: FDA-Public Use
  Company Number: US-GLAXOSMITHKLINE-US2022046758

PATIENT
  Age: 76 Year
  Sex: Female

DRUGS (1)
  1. TRELEGY ELLIPTA [Suspect]
     Active Substance: FLUTICASONE FUROATE\UMECLIDINIUM BROMIDE\VILANTEROL TRIFENATATE
     Indication: Chronic obstructive pulmonary disease
     Dosage: 1 PUFF(S), QD ,100 MCG/MG,ONE INHALATION BY MOUTH DAILY.
     Route: 055
     Dates: start: 20140101

REACTIONS (8)
  - Lung neoplasm malignant [Not Recovered/Not Resolved]
  - COVID-19 [Unknown]
  - Infection [Unknown]
  - Hypoxia [Unknown]
  - Tracheobronchial stent insertion [Unknown]
  - Thrombosis [Unknown]
  - Memory impairment [Unknown]
  - Feeling abnormal [Unknown]

NARRATIVE: CASE EVENT DATE: 20210101
